FAERS Safety Report 15676011 (Version 2)
Quarter: 2018Q4

REPORT INFORMATION
  Report Type: Spontaneous
  Country: US (occurrence: US)
  Receive Date: 20181130
  Receipt Date: 20181130
  Transmission Date: 20190205
  Serious: No
  Sender: FDA-Public Use
  Company Number: US-PFIZER INC-2018482713

PATIENT
  Age: 66 Year
  Sex: Female
  Weight: 66.67 kg

DRUGS (3)
  1. PREMPRO [Suspect]
     Active Substance: ESTROGENS, CONJUGATED\MEDROXYPROGESTERONE ACETATE
     Dosage: UNK (ESTROGENS CONJUGATED: 0.45MG/ MEDROXYPROGESTERONE ACETATE: 1.5MG)
  2. PREMPRO [Suspect]
     Active Substance: ESTROGENS, CONJUGATED\MEDROXYPROGESTERONE ACETATE
     Dosage: UNK (ESTROGENS CONJUGATED: 0.45MG/ MEDROXYPROGESTERONE ACETATE: 1.5MG)
  3. PREMPRO [Suspect]
     Active Substance: ESTROGENS, CONJUGATED\MEDROXYPROGESTERONE ACETATE
     Dosage: 0.625 MG, UNK

REACTIONS (4)
  - Hyperhidrosis [Unknown]
  - Night sweats [Unknown]
  - Drug ineffective [Unknown]
  - Hot flush [Unknown]
